FAERS Safety Report 5742267-3 (Version None)
Quarter: 2008Q2

REPORT INFORMATION
  Report Type: 
  Country: None (occurrence: None)
  Receive Date: 20080519
  Receipt Date: 20080508
  Transmission Date: 20081010
  Serious: Yes (Hospitalization, Other)
  Sender: FDA-Public Use
  Company Number: PHHO2008US02505

PATIENT
  Age: 58 Year
  Sex: Male
  Weight: 81.64 kg

DRUGS (2)
  1. NILOTINIB VS IMATINIB [Suspect]
     Indication: CHRONIC MYELOID LEUKAEMIA
     Dosage: 800MG DAILY
     Route: 048
     Dates: start: 20080208
  2. NILOTINIB VS IMATINIB [Suspect]
     Dosage: 400MG DAILY
     Route: 048
     Dates: end: 20080404

REACTIONS (11)
  - ARTHRALGIA [None]
  - BLINDNESS TRANSIENT [None]
  - CHEST PAIN [None]
  - FALL [None]
  - HEADACHE [None]
  - MIGRAINE [None]
  - NASAL POLYPECTOMY [None]
  - NEUTROPENIA [None]
  - PAPILLOMA [None]
  - SYNCOPE [None]
  - THROMBOCYTOPENIA [None]
